FAERS Safety Report 23256125 (Version 1)
Quarter: 2023Q4

REPORT INFORMATION
  Report Type: Other
  Country: US (occurrence: None)
  Receive Date: 20231204
  Receipt Date: 20231204
  Transmission Date: 20240110
  Serious: Yes (Other)
  Sender: FDA-Public Use
  Company Number: US-ROCHE-3463199

PATIENT
  Age: 35 Year
  Sex: Female

DRUGS (5)
  1. OCREVUS [Suspect]
     Active Substance: OCRELIZUMAB
     Indication: Relapsing multiple sclerosis
     Dosage: DATE OF TREATMENT: 02/FEB/2021, 02/SEP/2021, 09/JUN/2022, 03/JAN/2023, 22/JUN/2023
     Route: 065
     Dates: start: 20210202
  2. HYDROCODONE [Concomitant]
     Active Substance: HYDROCODONE
  3. IBUPROFEN [Concomitant]
     Active Substance: IBUPROFEN
  4. CLONAZEPAM [Concomitant]
     Active Substance: CLONAZEPAM
  5. PHENTERMINE [Concomitant]
     Active Substance: PHENTERMINE

REACTIONS (2)
  - Urinary tract infection [Recovered/Resolved]
  - Kidney infection [Recovered/Resolved]
